FAERS Safety Report 14060237 (Version 1)
Quarter: 2017Q4

REPORT INFORMATION
  Report Type: Report from Study
  Country: US (occurrence: US)
  Receive Date: 20171006
  Receipt Date: 20171006
  Transmission Date: 20180321
  Serious: No
  Sender: FDA-Public Use
  Company Number: US-AMGEN-USASL2017036612

PATIENT
  Age: 62 Year
  Sex: Female
  Weight: 58.5 kg

DRUGS (1)
  1. PROLIA [Suspect]
     Active Substance: DENOSUMAB
     Indication: OSTEOPOROSIS
     Dosage: 60 MG, Q6MO
     Route: 058
     Dates: start: 20160826

REACTIONS (5)
  - Erythema [Recovered/Resolved]
  - Urticaria [Recovered/Resolved]
  - Peripheral swelling [Recovered/Resolved]
  - Joint swelling [Recovered/Resolved]
  - Pruritus [Recovered/Resolved]
